FAERS Safety Report 5759067-0 (Version None)
Quarter: 2008Q2

REPORT INFORMATION
  Report Type: 
  Country: None (occurrence: None)
  Receive Date: 20080604
  Receipt Date: 20080528
  Transmission Date: 20081010
  Serious: Yes (Hospitalization)
  Sender: FDA-Public Use
  Company Number: US-WATSON-2008-03274

PATIENT

DRUGS (7)
  1. ETOPOSIDE (WATSON LABORATORIES) [Suspect]
     Indication: SARCOMA
     Dosage: 48 WEEKS OF CHEMOTHERAPY
     Route: 065
     Dates: start: 20050101, end: 20050101
  2. VINCRISTINE [Suspect]
     Indication: SARCOMA
     Dosage: 48 WEEKS OF CHEMOTHERAPY
     Route: 065
     Dates: start: 20050101, end: 20050101
  3. DOXORUBICIN HCL [Suspect]
     Indication: SARCOMA
     Dosage: 48 WEEKS OF CHEMOTHERAPY
     Route: 065
     Dates: start: 20050101, end: 20050101
  4. CYCLOPHOSPHAMIDE [Suspect]
     Indication: SARCOMA
     Dosage: 48 WEEKS OF CHEMOTHERAPY
     Route: 065
     Dates: start: 20050101, end: 20050101
  5. IFOSFAMIDE [Suspect]
     Indication: SARCOMA
     Dosage: 48 WEEKS OF CHEMOTHERAPY
     Route: 065
     Dates: start: 20050101, end: 20050101
  6. NAFARELIN ACETATE [Concomitant]
     Indication: DRUG USE FOR UNKNOWN INDICATION
  7. ETHINYL ESTRADIOL AND NORETHINDRONE [Concomitant]
     Indication: OVARIAN FAILURE

REACTIONS (3)
  - UTERINE HAEMORRHAGE [None]
  - VAGINAL OBSTRUCTION [None]
  - VULVOVAGINAL ADHESION [None]
